FAERS Safety Report 8950998 (Version 1)
Quarter: 2012Q4

REPORT INFORMATION
  Report Type: 
  Country: CN (occurrence: CN)
  Receive Date: 20121207
  Receipt Date: 20121207
  Transmission Date: 20130627
  Serious: Yes (Life-Threatening, Hospitalization)
  Sender: FDA-Public Use
  Company Number: CN-ELI_LILLY_AND_COMPANY-CN201211009307

PATIENT
  Age: 75 Year
  Sex: Female

DRUGS (6)
  1. DOBUTAMINE HYDROCHLORIDE [Suspect]
     Indication: CONGESTIVE CARDIOMYOPATHY
     Dosage: UNK
  2. DIGOXIN [Concomitant]
     Indication: CONGESTIVE CARDIOMYOPATHY
  3. VALSARTAN [Concomitant]
     Indication: CONGESTIVE CARDIOMYOPATHY
  4. FUROSEMIDE [Concomitant]
     Indication: CONGESTIVE CARDIOMYOPATHY
  5. SPIRONOLACTONE [Concomitant]
     Indication: CONGESTIVE CARDIOMYOPATHY
  6. METOPROLOL [Concomitant]
     Indication: CONGESTIVE CARDIOMYOPATHY
     Dosage: UNK

REACTIONS (1)
  - Ventricular fibrillation [Recovered/Resolved]
